FAERS Safety Report 12093823 (Version 1)
Quarter: 2016Q1

REPORT INFORMATION
  Report Type: Spontaneous
  Country: US (occurrence: US)
  Receive Date: 20160219
  Receipt Date: 20160219
  Transmission Date: 20160526
  Serious: Yes (Other)
  Sender: FDA-Public Use
  Company Number: US-GLAXOSMITHKLINE-US2016GSK023426

PATIENT
  Age: 29 Year
  Sex: Female

DRUGS (4)
  1. NEFAZODONE [Suspect]
     Active Substance: NEFAZODONE
     Indication: ASTHMA
     Dosage: 50 MG, UNK
     Route: 055
  2. FLUTICASONE PROPIONATE+SALMETEROL XINAFOATE [Suspect]
     Active Substance: FLUTICASONE PROPIONATE\SALMETEROL XINAFOATE
     Indication: ASTHMA
     Dosage: 1 DF, BID (50/500 ?G)
  3. PREDNISONE. [Suspect]
     Active Substance: PREDNISONE
     Indication: ASTHMA
     Dosage: UNK
     Route: 048
  4. FLUTICASONE PROPIONATE+SALMETEROL XINAFOATE [Suspect]
     Active Substance: FLUTICASONE PROPIONATE\SALMETEROL XINAFOATE
     Dosage: DOSE REDUCTION, UNK

REACTIONS (2)
  - Hypogammaglobulinaemia [Unknown]
  - Adrenal suppression [Unknown]
